FAERS Safety Report 7961758-8 (Version None)
Quarter: 2011Q4

REPORT INFORMATION
  Report Type: 
  Country: None (occurrence: None)
  Receive Date: 20111207
  Receipt Date: 20111130
  Transmission Date: 20120403
  Serious: Yes (Death)
  Sender: FDA-Public Use
  Company Number: JP-SANOFI-AVENTIS-2011SA046625

PATIENT
  Age: 77 Year
  Sex: Male
  Weight: 68 kg

DRUGS (10)
  1. VEMAS S [Concomitant]
     Route: 048
  2. PLAVIX [Suspect]
     Indication: STENT PLACEMENT
     Route: 048
     Dates: start: 20110507, end: 20110719
  3. ASPIRIN [Concomitant]
     Route: 048
  4. CLEANAL [Concomitant]
     Dosage: 6 TABLETS
     Route: 048
  5. MUCOSOLVAN [Concomitant]
     Route: 048
  6. PLAVIX [Suspect]
     Route: 048
     Dates: start: 20110507, end: 20110719
  7. AMLODIPINE [Concomitant]
     Route: 048
  8. TRICHLORMETHIAZIDE [Concomitant]
     Route: 048
  9. RABEPRAZOLE SODIUM [Concomitant]
     Route: 048
  10. SENNOSIDE A [Concomitant]
     Route: 048

REACTIONS (9)
  - MALAISE [None]
  - JAUNDICE [None]
  - DECREASED APPETITE [None]
  - DIARRHOEA [None]
  - PETECHIAE [None]
  - HAEMORRHAGE [None]
  - PURPURA [None]
  - INTESTINAL PERFORATION [None]
  - THROMBOTIC THROMBOCYTOPENIC PURPURA [None]
